FAERS Safety Report 9921585 (Version 1)
Quarter: 2014Q1

REPORT INFORMATION
  Report Type: Spontaneous
  Country: US (occurrence: US)
  Receive Date: 20140225
  Receipt Date: 20140225
  Transmission Date: 20141002
  Serious: No
  Sender: FDA-Public Use
  Company Number: US-BAYER-2014-029234

PATIENT
  Age: 36 Year
  Sex: Female

DRUGS (1)
  1. MIRENA [Suspect]
     Indication: CONTRACEPTION
     Dosage: UNK
     Route: 015
     Dates: start: 200911, end: 20140220

REACTIONS (10)
  - Chest pain [None]
  - Dizziness [None]
  - Nausea [None]
  - Fatigue [None]
  - Decreased appetite [None]
  - Weight decreased [None]
  - Asthenia [None]
  - Paraesthesia [None]
  - Headache [None]
  - Visual impairment [None]
